FAERS Safety Report 9520927 (Version 1)
Quarter: 2013Q3

REPORT INFORMATION
  Report Type: Spontaneous
  Country: US (occurrence: US)
  Receive Date: 20130913
  Receipt Date: 20130913
  Transmission Date: 20140515
  Serious: No
  Sender: FDA-Public Use
  Company Number: US-PFIZER INC-2013260002

PATIENT
  Sex: Male

DRUGS (2)
  1. ADVIL [Suspect]
     Indication: PAIN
     Dosage: UNK
  2. ADVIL [Suspect]
     Indication: INSOMNIA

REACTIONS (4)
  - Off label use [Unknown]
  - Somnolence [Unknown]
  - Feeling of relaxation [Unknown]
  - Therapeutic response unexpected [Unknown]
